FAERS Safety Report 18574999 (Version 1)
Quarter: 2020Q4

REPORT INFORMATION
  Report Type: Spontaneous
  Country: CN (occurrence: CN)
  Receive Date: 20201203
  Receipt Date: 20201203
  Transmission Date: 20210114
  Serious: Yes (Hospitalization)
  Sender: FDA-Public Use
  Company Number: CN-EISAI MEDICAL RESEARCH-EC-2020-084476

PATIENT
  Age: 50 Year
  Sex: Male

DRUGS (1)
  1. LENVIMA [Suspect]
     Active Substance: LENVATINIB
     Indication: HEPATOCELLULAR CARCINOMA
     Route: 048
     Dates: start: 20200714, end: 20201112

REACTIONS (4)
  - Renal impairment [Recovering/Resolving]
  - Protein urine present [Recovering/Resolving]
  - Blood albumin decreased [Recovering/Resolving]
  - Urinary occult blood positive [Recovering/Resolving]

NARRATIVE: CASE EVENT DATE: 20201112
